FAERS Safety Report 9025383 (Version 2)
Quarter: 2013Q4

REPORT INFORMATION
  Report Type: Spontaneous
  Country: GB (occurrence: GB)
  Receive Date: 20130122
  Receipt Date: 20131010
  Transmission Date: 20140711
  Serious: Yes (Other)
  Sender: FDA-Public Use
  Company Number: GB-WATSON-2013-00687

PATIENT
  Age: 57 Year
  Sex: Female
  Weight: 80 kg

DRUGS (5)
  1. ATENOLOL (UNKNOWN) [Suspect]
     Indication: HYPERTENSION
     Dosage: 50 MG, DAILY
     Route: 048
     Dates: start: 2002, end: 20120921
  2. SENNA                              /00142201/ [Concomitant]
     Indication: CONSTIPATION
     Dosage: 7.5 MG, BID; AT NIGHT AS REQUIRED
     Route: 048
     Dates: start: 2011
  3. BENDROFLUMETHIAZIDE [Concomitant]
     Indication: HYPERTENSION
     Dosage: 2.5 MG, DAILY
     Route: 048
     Dates: start: 2002, end: 20120928
  4. CETIRIZINE [Concomitant]
     Indication: SEASONAL ALLERGY
     Dosage: 10 MG, DAILY
     Route: 048
     Dates: start: 20110202
  5. CETIRIZINE [Concomitant]
     Dosage: CONTINUING
     Route: 048
     Dates: start: 20110202

REACTIONS (1)
  - Cough [Recovered/Resolved]
